FAERS Safety Report 8112554-2 (Version None)
Quarter: 2012Q1

REPORT INFORMATION
  Report Type: 
  Country: None (occurrence: None)
  Receive Date: 20120203
  Receipt Date: 20120120
  Transmission Date: 20120608
  Serious: Yes (Death)
  Sender: FDA-Public Use
  Company Number: IT-CELGENEUS-083-21880-11060479

PATIENT

DRUGS (1)
  1. REVLIMID [Suspect]
     Dosage: 5 MILLIGRAM
     Route: 048
     Dates: start: 20090610, end: 20090617

REACTIONS (2)
  - TOXICITY TO VARIOUS AGENTS [None]
  - ACUTE MYOCARDIAL INFARCTION [None]
